FAERS Safety Report 20189941 (Version 2)
Quarter: 2022Q1

REPORT INFORMATION
  Report Type: Report from Study
  Country: US (occurrence: US)
  Receive Date: 20211215
  Receipt Date: 20220104
  Transmission Date: 20220423
  Serious: Yes (Hospitalization)
  Sender: FDA-Public Use
  Company Number: US-NOVARTISPH-NVSC2021US026215

PATIENT
  Age: 66 Year
  Sex: Male
  Weight: 94.5 kg

DRUGS (81)
  1. MYCOPHENOLATE MOFETIL [Suspect]
     Active Substance: MYCOPHENOLATE MOFETIL
     Indication: Liver transplant
     Dosage: 500 MG, BID (2 TIMES PER DAY)
     Route: 048
     Dates: start: 20210122
  2. TACROLIMUS [Suspect]
     Active Substance: TACROLIMUS
     Indication: Liver transplant
     Dosage: 4 MG, BID (2 TIMES PER DAY)
     Route: 048
     Dates: start: 20210122, end: 20210202
  3. TACROLIMUS [Suspect]
     Active Substance: TACROLIMUS
     Dosage: 2 MG, BID
     Route: 048
     Dates: start: 20210203
  4. VASOSTRICT [Concomitant]
     Active Substance: VASOPRESSIN
     Indication: Blood pressure increased
     Dosage: UNK
     Route: 065
     Dates: start: 20210117, end: 20210118
  5. VALGANCICLOVIR [Concomitant]
     Active Substance: VALGANCICLOVIR
     Indication: Liver transplant
     Dosage: UNK
     Route: 065
     Dates: start: 20210127, end: 20210417
  6. INSULIN NOS [Concomitant]
     Active Substance: INSULIN NOS
     Indication: Hyperglycaemia
     Dosage: UNK
     Route: 065
     Dates: start: 20210117, end: 20210117
  7. INSULIN NOS [Concomitant]
     Active Substance: INSULIN NOS
     Dosage: UNK
     Route: 065
     Dates: start: 20210117, end: 20210118
  8. INSULIN NOS [Concomitant]
     Active Substance: INSULIN NOS
     Dosage: UNK
     Route: 065
     Dates: start: 20210118, end: 20210118
  9. INSULIN NOS [Concomitant]
     Active Substance: INSULIN NOS
     Dosage: UNK
     Route: 065
     Dates: start: 20210118, end: 20210119
  10. INSULIN NOS [Concomitant]
     Active Substance: INSULIN NOS
     Dosage: UNK
     Route: 065
     Dates: start: 20210119, end: 20210119
  11. METHYLPREDNISOLONE [Concomitant]
     Active Substance: METHYLPREDNISOLONE
     Indication: Liver transplant
     Dosage: UNK
     Route: 065
     Dates: start: 20210118, end: 20210118
  12. METHYLPREDNISOLONE [Concomitant]
     Active Substance: METHYLPREDNISOLONE
     Indication: Prophylaxis against transplant rejection
     Dosage: UNK
     Route: 065
     Dates: start: 20210119, end: 20210119
  13. METHYLPREDNISOLONE [Concomitant]
     Active Substance: METHYLPREDNISOLONE
     Dosage: UNK
     Route: 065
     Dates: start: 20210120, end: 20210120
  14. METHYLPREDNISOLONE [Concomitant]
     Active Substance: METHYLPREDNISOLONE
     Dosage: UNK
     Route: 065
     Dates: start: 20210121, end: 20210121
  15. METHYLPREDNISOLONE [Concomitant]
     Active Substance: METHYLPREDNISOLONE
     Dosage: UNK
     Route: 065
     Dates: start: 20210122, end: 20210122
  16. METHYLPREDNISOLONE [Concomitant]
     Active Substance: METHYLPREDNISOLONE
     Dosage: UNK
     Route: 065
     Dates: start: 20210123, end: 20210123
  17. METHYLPREDNISOLONE [Concomitant]
     Active Substance: METHYLPREDNISOLONE
     Dosage: UNK
     Route: 065
     Dates: start: 20210125, end: 20210125
  18. METHYLPREDNISOLONE [Concomitant]
     Active Substance: METHYLPREDNISOLONE
     Dosage: UNK
     Route: 065
     Dates: start: 20210125, end: 20210209
  19. DAPSONE [Concomitant]
     Active Substance: DAPSONE
     Indication: Liver transplant
     Dosage: UNK
     Route: 065
     Dates: start: 20210127, end: 20210417
  20. FLUCONAZOLE [Concomitant]
     Active Substance: FLUCONAZOLE
     Indication: Liver transplant
     Dosage: UNK
     Route: 065
     Dates: start: 20210117, end: 20210119
  21. FLUCONAZOLE [Concomitant]
     Active Substance: FLUCONAZOLE
     Indication: Infection prophylaxis
     Dosage: UNK
     Route: 065
     Dates: start: 20210127, end: 20210217
  22. VELTASSA [Concomitant]
     Active Substance: PATIROMER
     Indication: Liver transplant
     Dosage: UNK
     Route: 065
     Dates: start: 20210127, end: 20210428
  23. TRAMADOL [Concomitant]
     Active Substance: TRAMADOL
     Indication: Procedural pain
     Dosage: UNK
     Route: 065
     Dates: start: 20210123
  24. TRAMADOL [Concomitant]
     Active Substance: TRAMADOL
     Indication: Spinal osteoarthritis
  25. VALCYTE [Concomitant]
     Active Substance: VALGANCICLOVIR HYDROCHLORIDE
     Indication: Liver transplant
     Dosage: UNK
     Route: 065
     Dates: start: 20210119, end: 20210417
  26. ATOVAQUONE [Concomitant]
     Active Substance: ATOVAQUONE
     Indication: Infection prophylaxis
     Dosage: UNK
     Route: 065
     Dates: start: 20210120, end: 20210123
  27. ROBAXIN [Concomitant]
     Active Substance: METHOCARBAMOL
     Indication: Tremor
     Dosage: UNK
     Route: 065
     Dates: start: 20210202
  28. LOPRESSOR [Concomitant]
     Active Substance: METOPROLOL TARTRATE
     Indication: Hypertension
     Dosage: UNK
     Route: 065
     Dates: start: 20210119
  29. VASCEPA [Concomitant]
     Active Substance: ICOSAPENT ETHYL
     Indication: Blood triglycerides abnormal
     Dosage: UNK
     Route: 065
     Dates: start: 20201011
  30. MELATONIN [Concomitant]
     Active Substance: MELATONIN
     Indication: Insomnia
     Dosage: UNK
     Route: 065
     Dates: start: 20210119, end: 20210309
  31. MYCOPHENOLIC ACID [Concomitant]
     Active Substance: MYCOPHENOLIC ACID
     Indication: Liver transplant
     Dosage: UNK
     Route: 065
     Dates: start: 20210117, end: 20210117
  32. MYCOPHENOLIC ACID [Concomitant]
     Active Substance: MYCOPHENOLIC ACID
     Indication: Prophylaxis against transplant rejection
     Dosage: UNK
     Route: 065
     Dates: start: 20210117, end: 20210127
  33. PROGRAF [Concomitant]
     Active Substance: TACROLIMUS
     Indication: Liver transplant
     Dosage: UNK
     Route: 065
     Dates: start: 20210119, end: 20210119
  34. PROGRAF [Concomitant]
     Active Substance: TACROLIMUS
     Dosage: UNK
     Route: 065
     Dates: start: 20210120, end: 20210120
  35. PROGRAF [Concomitant]
     Active Substance: TACROLIMUS
     Dosage: UNK
     Route: 065
     Dates: start: 20210121, end: 20210121
  36. CELLCEPT [Concomitant]
     Active Substance: MYCOPHENOLATE MOFETIL
     Indication: Prophylaxis against transplant rejection
     Dosage: UNK
     Route: 065
     Dates: start: 20210118, end: 20210119
  37. CELLCEPT [Concomitant]
     Active Substance: MYCOPHENOLATE MOFETIL
     Dosage: UNK
     Route: 065
     Dates: start: 20210120
  38. ACETAMINOPHEN [Concomitant]
     Active Substance: ACETAMINOPHEN
     Indication: Pain prophylaxis
     Dosage: UNK
     Route: 065
     Dates: start: 20210118, end: 20210118
  39. ACETAMINOPHEN [Concomitant]
     Active Substance: ACETAMINOPHEN
     Indication: Headache
     Dosage: UNK
     Route: 065
     Dates: start: 20210119, end: 20210127
  40. ACETAMINOPHEN [Concomitant]
     Active Substance: ACETAMINOPHEN
     Indication: Abdominal pain
     Dosage: UNK
     Route: 065
     Dates: start: 20210202
  41. ACETAMINOPHEN [Concomitant]
     Active Substance: ACETAMINOPHEN
     Indication: Procedural pain
  42. ALBUMIN HUMAN [Concomitant]
     Active Substance: ALBUMIN HUMAN
     Indication: Prophylaxis
     Dosage: UNK
     Route: 065
     Dates: start: 20210117, end: 20210117
  43. ALBUMIN HUMAN [Concomitant]
     Active Substance: ALBUMIN HUMAN
     Dosage: UNK
     Route: 065
     Dates: start: 20210118, end: 20210118
  44. ALBUMIN HUMAN [Concomitant]
     Active Substance: ALBUMIN HUMAN
     Dosage: UNK
     Route: 065
     Dates: start: 20210126, end: 20210126
  45. AMPICILLIN [Concomitant]
     Active Substance: AMPICILLIN
     Indication: Infection prophylaxis
     Dosage: UNK
     Route: 065
     Dates: start: 20210117, end: 20210117
  46. AMPICILLIN [Concomitant]
     Active Substance: AMPICILLIN
     Dosage: UNK
     Route: 065
     Dates: start: 20210118, end: 20210118
  47. AMPICILLIN [Concomitant]
     Active Substance: AMPICILLIN
     Dosage: UNK
     Route: 065
     Dates: start: 20210119, end: 20210119
  48. AMPICILLIN [Concomitant]
     Active Substance: AMPICILLIN
     Dosage: UNK
     Route: 065
     Dates: start: 20210120, end: 20210120
  49. ASPIRIN [Concomitant]
     Active Substance: ASPIRIN
     Indication: General physical condition
     Dosage: UNK
     Route: 065
     Dates: start: 20210121, end: 20210127
  50. ATORVASTATIN [Concomitant]
     Active Substance: ATORVASTATIN
     Indication: Type V hyperlipidaemia
     Dosage: UNK
     Route: 065
     Dates: start: 2016
  51. BISACODYL [Concomitant]
     Active Substance: BISACODYL
     Indication: Constipation prophylaxis
     Dosage: UNK
     Route: 065
     Dates: start: 20210125, end: 20210125
  52. CALCIUM CHLORIDE [Concomitant]
     Active Substance: CALCIUM CHLORIDE
     Indication: Prophylaxis
     Dosage: UNK
     Route: 065
     Dates: start: 20210117, end: 20210117
  53. CALCIUM CHLORIDE [Concomitant]
     Active Substance: CALCIUM CHLORIDE
     Dosage: UNK
     Route: 065
     Dates: start: 20210120, end: 20210120
  54. CEFTRIAXONE [Concomitant]
     Active Substance: CEFTRIAXONE
     Indication: Infection prophylaxis
     Dosage: UNK
     Route: 065
     Dates: start: 20210118, end: 20210118
  55. CEFTRIAXONE [Concomitant]
     Active Substance: CEFTRIAXONE
     Dosage: UNK
     Route: 065
     Dates: start: 20210120, end: 20210120
  56. CHLORHEXIDINE [Concomitant]
     Active Substance: CHLORHEXIDINE
     Indication: Infection prophylaxis
     Dosage: UNK
     Route: 065
     Dates: start: 20210117, end: 20210117
  57. DEXTROSE [Concomitant]
     Active Substance: DEXTROSE
     Indication: Prophylaxis
     Dosage: UNK
     Route: 065
     Dates: start: 20210118, end: 20210118
  58. DOCUSATE SODIUM [Concomitant]
     Active Substance: DOCUSATE SODIUM
     Indication: Constipation prophylaxis
     Dosage: UNK
     Route: 065
     Dates: start: 20210120
  59. UNSPECIFIED INGREDIENT [Concomitant]
     Active Substance: UNSPECIFIED INGREDIENT
     Indication: pH body fluid
     Dosage: UNK
     Route: 065
     Dates: start: 20210118, end: 20210118
  60. UNSPECIFIED INGREDIENT [Concomitant]
     Active Substance: UNSPECIFIED INGREDIENT
     Dosage: UNK
     Route: 065
     Dates: start: 20210119, end: 20210119
  61. FAMOTIDINE [Concomitant]
     Active Substance: FAMOTIDINE
     Indication: Gastrooesophageal reflux prophylaxis
     Dosage: UNK
     Route: 065
     Dates: start: 20210117, end: 20210120
  62. FAMOTIDINE [Concomitant]
     Active Substance: FAMOTIDINE
     Dosage: UNK
     Route: 065
     Dates: start: 20210120, end: 20210127
  63. FENTANYL [Concomitant]
     Active Substance: FENTANYL
     Indication: Liver transplant
     Dosage: UNK
     Route: 065
     Dates: start: 20210117, end: 20210117
  64. FENTANYL [Concomitant]
     Active Substance: FENTANYL
     Indication: Procedural pain
     Dosage: UNK
     Route: 065
     Dates: start: 20210118, end: 20210118
  65. GABAPENTIN [Concomitant]
     Active Substance: GABAPENTIN
     Indication: Procedural pain
     Dosage: UNK
     Route: 065
     Dates: start: 20210120, end: 20210125
  66. GABAPENTIN [Concomitant]
     Active Substance: GABAPENTIN
     Dosage: UNK
     Route: 065
     Dates: start: 20210126, end: 20210126
  67. HEPARIN [Concomitant]
     Active Substance: HEPARIN SODIUM
     Indication: Prophylaxis
     Dosage: UNK
     Route: 065
     Dates: start: 20210117, end: 20210127
  68. HYDROMORPHONE [Concomitant]
     Active Substance: HYDROMORPHONE
     Indication: Procedural pain
     Dosage: UNK
     Route: 065
     Dates: start: 20210118, end: 20210119
  69. HYDROMORPHONE [Concomitant]
     Active Substance: HYDROMORPHONE
     Dosage: UNK
     Route: 065
     Dates: start: 20210118, end: 20210120
  70. NPH INSULIN [Concomitant]
     Active Substance: INSULIN BEEF
     Indication: Hyperglycaemia
     Dosage: UNK
     Route: 065
     Dates: start: 20210122, end: 20210125
  71. MAGNESIUM SULFATE [Concomitant]
     Active Substance: MAGNESIUM SULFATE
     Indication: Prophylaxis
     Dosage: UNK
     Route: 065
     Dates: start: 20210117, end: 20210118
  72. MAGNESIUM SULFATE [Concomitant]
     Active Substance: MAGNESIUM SULFATE
     Dosage: UNK
     Route: 065
     Dates: start: 20210119, end: 20210119
  73. MAGNESIUM SULFATE [Concomitant]
     Active Substance: MAGNESIUM SULFATE
     Dosage: UNK
     Route: 065
     Dates: start: 20210127, end: 20210127
  74. MIRTAZAPINE [Concomitant]
     Active Substance: MIRTAZAPINE
     Indication: Increased appetite
     Dosage: UNK
     Route: 065
     Dates: start: 20210125, end: 20210126
  75. LEVOPHED [Concomitant]
     Active Substance: NOREPINEPHRINE BITARTRATE
     Indication: Prophylaxis
     Dosage: UNK
     Route: 065
     Dates: start: 20210118, end: 20210118
  76. MIRALAX [Concomitant]
     Active Substance: POLYETHYLENE GLYCOL 3350
     Indication: Constipation prophylaxis
     Dosage: UNK
     Route: 065
     Dates: start: 20210120, end: 20210125
  77. POTASSIUM CHLORIDE [Concomitant]
     Active Substance: POTASSIUM CHLORIDE
     Indication: Prophylaxis
     Dosage: UNK
     Route: 065
     Dates: start: 20210117, end: 20210118
  78. POTASSIUM CHLORIDE [Concomitant]
     Active Substance: POTASSIUM CHLORIDE
     Dosage: UNK
     Route: 065
     Dates: start: 20210118, end: 20210118
  79. PROPOFOL [Concomitant]
     Active Substance: PROPOFOL
     Indication: Anaesthesia
     Dosage: UNK
     Route: 065
     Dates: start: 20210117, end: 20210117
  80. SODIUM CHLORIDE [Concomitant]
     Active Substance: SODIUM CHLORIDE
     Indication: Prophylaxis
     Dosage: UNK
     Route: 065
     Dates: start: 20210117, end: 20210117
  81. SODIUM CHLORIDE [Concomitant]
     Active Substance: SODIUM CHLORIDE
     Dosage: UNK
     Route: 065
     Dates: start: 20210117, end: 20210118

REACTIONS (1)
  - Hyperkalaemia [Recovered/Resolved]

NARRATIVE: CASE EVENT DATE: 20210202
